FAERS Safety Report 4347769-2 (Version None)
Quarter: 2004Q2

REPORT INFORMATION
  Report Type: 
  Country: None (occurrence: None)
  Receive Date: 20040422
  Receipt Date: 20040406
  Transmission Date: 20050107
  Serious: Yes (Other)
  Sender: FDA-Public Use
  Company Number: USA040361801

PATIENT
  Age: 62 Year
  Sex: Female

DRUGS (1)
  1. HUMULIN 70/30 [Suspect]
     Dosage: 50 U/DAY

REACTIONS (4)
  - BLOOD GLUCOSE DECREASED [None]
  - NERVE INJURY [None]
  - PARAPLEGIA [None]
  - PHARMACEUTICAL PRODUCT COMPLAINT [None]
